FAERS Safety Report 8602517 (Version 3)
Quarter: 2012Q4

REPORT INFORMATION
  Report Type: 
  Country: BR (occurrence: BR)
  Receive Date: 20120607
  Receipt Date: 20121114
  Transmission Date: 20130627
  Serious: Yes (Death, Hospitalization, Other)
  Sender: FDA-Public Use
  Company Number: BR-PFIZER INC-2012132397

PATIENT
  Age: 55 Year
  Sex: Male
  Weight: 71 kg

DRUGS (1)
  1. SUTENT [Suspect]
     Indication: RENAL CELL CARCINOMA
     Dosage: 50 mg, once daily (cycle 4 to 2)
     Route: 048
     Dates: start: 20120518

REACTIONS (6)
  - Cardiac arrest [Fatal]
  - Urinary tract infection [Unknown]
  - Cerebral haemorrhage [Unknown]
  - Disease progression [Unknown]
  - Renal cell carcinoma [Unknown]
  - Mental disorder [Unknown]
